FAERS Safety Report 7933649-X (Version None)
Quarter: 2011Q4

REPORT INFORMATION
  Report Type: 
  Country: None (occurrence: None)
  Receive Date: 20111122
  Receipt Date: 20111111
  Transmission Date: 20120403
  Serious: Yes (Other)
  Sender: FDA-Public Use
  Company Number: PHEH2011US009253

PATIENT

DRUGS (1)
  1. TASIGNA [Suspect]

REACTIONS (5)
  - PERIPHERAL ARTERIAL OCCLUSIVE DISEASE [None]
  - RED BLOOD CELL SEDIMENTATION RATE INCREASED [None]
  - HEADACHE [None]
  - PAIN [None]
  - DISCOMFORT [None]
